FAERS Safety Report 25651166 (Version 6)
Quarter: 2025Q4

REPORT INFORMATION
  Report Type: Report from Study
  Country: JP (occurrence: JP)
  Receive Date: 20250806
  Receipt Date: 20251202
  Transmission Date: 20260118
  Serious: Yes (Hospitalization, Other)
  Sender: PFIZER
  Company Number: JP-PFIZER INC-202500080840

PATIENT
  Age: 59 Year
  Sex: Male
  Weight: 37.5 kg

DRUGS (15)
  1. ELRANATAMAB [Suspect]
     Active Substance: ELRANATAMAB
     Indication: Plasma cell myeloma recurrent
     Dosage: 12 MG, 1X/DAY
     Route: 058
     Dates: start: 20241118, end: 20241118
  2. ELRANATAMAB [Suspect]
     Active Substance: ELRANATAMAB
     Dosage: 32 MG, 1X/DAY
     Route: 058
     Dates: start: 20241121, end: 20241121
  3. ELRANATAMAB [Suspect]
     Active Substance: ELRANATAMAB
     Dosage: 76 MG, 1X/DAY
     Route: 058
     Dates: start: 20241125, end: 20241125
  4. ELRANATAMAB [Suspect]
     Active Substance: ELRANATAMAB
     Dosage: 76 MG, ONCE A WEEK
     Route: 058
     Dates: start: 20241202, end: 20250106
  5. ELRANATAMAB [Suspect]
     Active Substance: ELRANATAMAB
     Dosage: 76 MG, ONCE A WEEK
     Route: 058
     Dates: start: 20250120, end: 20250428
  6. ELRANATAMAB [Suspect]
     Active Substance: ELRANATAMAB
     Dosage: 76 MG, 1X/DAY
     Route: 058
     Dates: start: 20250512, end: 20250512
  7. ELRANATAMAB [Suspect]
     Active Substance: ELRANATAMAB
     Dosage: 76 MG, ONCE EVERY TWO WEEKS
     Route: 058
     Dates: start: 20250602, end: 20250630
  8. DIMEMORFAN PHOSPHATE [Concomitant]
     Active Substance: DIMEMORFAN PHOSPHATE
     Indication: Cough variant asthma
     Dosage: UNK
     Route: 048
     Dates: start: 20250512
  9. SULFAMETHOXAZOLE\TRIMETHOPRIM [Concomitant]
     Active Substance: SULFAMETHOXAZOLE\TRIMETHOPRIM
     Indication: Opportunistic infection prophylaxis
     Dosage: UNK
     Route: 048
     Dates: start: 20170307
  10. BIOFERMIN [BIFIDOBACTERIUM NOS] [Concomitant]
     Indication: Gastrointestinal disorder prophylaxis
     Dosage: UNK
     Route: 048
     Dates: start: 20250428
  11. AMBROXOL HYDROCHLORIDE [Concomitant]
     Active Substance: AMBROXOL HYDROCHLORIDE
     Indication: Cough variant asthma
     Dosage: UNK
     Route: 048
     Dates: start: 20250512
  12. OXYCODONE HYDROCHLORIDE [Concomitant]
     Active Substance: OXYCODONE HYDROCHLORIDE
     Indication: Pain
     Dosage: UNK
     Route: 048
     Dates: start: 20241111
  13. LOPERAMIDE HYDROCHLORIDE [Concomitant]
     Active Substance: LOPERAMIDE HYDROCHLORIDE
     Indication: Diarrhoea
     Dosage: UNK
     Route: 048
     Dates: start: 20250428
  14. FLUTICASONE FUROATE\VILANTEROL TRIFENATATE [Concomitant]
     Active Substance: FLUTICASONE FUROATE\VILANTEROL TRIFENATATE
     Indication: Cough variant asthma
     Dosage: UNK
     Route: 048
     Dates: start: 20250609
  15. RABEPRAZOLE SODIUM [Concomitant]
     Active Substance: RABEPRAZOLE SODIUM
     Indication: Prophylaxis
     Dosage: UNK
     Route: 048
     Dates: start: 20211004

REACTIONS (12)
  - Herpes zoster [Recovered/Resolved]
  - Salmonella sepsis [Recovered/Resolved]
  - Enterocolitis [Recovered/Resolved]
  - Gastroenteritis salmonella [Recovered/Resolved]
  - Salmonella sepsis [Recovered/Resolved]
  - Enterocolitis [Recovered/Resolved]
  - Cytomegalovirus infection [Not Recovered/Not Resolved]
  - Pneumonia [Recovered/Resolved]
  - COVID-19 [Recovered/Resolved]
  - White blood cell count decreased [Recovering/Resolving]
  - Hepatic function abnormal [Recovering/Resolving]
  - Cough [Recovering/Resolving]

NARRATIVE: CASE EVENT DATE: 20250401
